FAERS Safety Report 18622695 (Version 1)
Quarter: 2020Q4

REPORT INFORMATION
  Report Type: Spontaneous
  Country: US (occurrence: US)
  Receive Date: 20201216
  Receipt Date: 20201216
  Transmission Date: 20210114
  Serious: Yes (Hospitalization)
  Sender: FDA-Public Use
  Company Number: None

PATIENT
  Age: 16 Year
  Sex: Female
  Weight: 47.25 kg

DRUGS (1)
  1. METOCLOPRAMIDE. [Suspect]
     Active Substance: METOCLOPRAMIDE
     Indication: LACTATION DISORDER
     Dosage: ?          QUANTITY:1 TABLET(S);?
     Route: 048
     Dates: start: 20201207, end: 20201208

REACTIONS (5)
  - Arthralgia [None]
  - Anxiety [None]
  - Tardive dyskinesia [None]
  - Disturbance in attention [None]
  - Mydriasis [None]

NARRATIVE: CASE EVENT DATE: 20201208
